FAERS Safety Report 8779255 (Version 1)
Quarter: 2012Q4

REPORT INFORMATION
  Report Type: 
  Country: US (occurrence: US)
  Receive Date: 20120912
  Receipt Date: 20120912
  Transmission Date: 20130627
  Serious: Yes (Other)
  Sender: FDA-Public Use
  Company Number: US-ROCHE-1122372

PATIENT
  Age: 59 Year
  Sex: Female

DRUGS (2)
  1. ACTEMRA [Suspect]
     Indication: RHEUMATOID ARTHRITIS
     Route: 042
     Dates: start: 20120403
  2. ACTEMRA [Suspect]
     Dosage: low dose
     Route: 065
     Dates: start: 20120415

REACTIONS (2)
  - Cholecystectomy [Unknown]
  - Back pain [Unknown]
